FAERS Safety Report 19869315 (Version 2)
Quarter: 2021Q4

REPORT INFORMATION
  Report Type: Spontaneous
  Country: BE (occurrence: BE)
  Receive Date: 20210922
  Receipt Date: 20211012
  Transmission Date: 20220303
  Serious: Yes (Other)
  Sender: FDA-Public Use
  Company Number: BE-BAYER-2021-212587

PATIENT

DRUGS (2)
  1. EYLEA [Suspect]
     Active Substance: AFLIBERCEPT
     Indication: Age-related macular degeneration
     Dosage: UNK; HAS ALREADY RECEIVED 10 INJECTIONS FOR FAR
     Route: 031
  2. EYLEA [Suspect]
     Active Substance: AFLIBERCEPT
     Dosage: UNK; CURRENTLY SET AT A 12-WEEK INTERVAL
     Route: 031

REACTIONS (2)
  - Vaginal infection [Unknown]
  - Urethritis [Unknown]
